FAERS Safety Report 13382216 (Version 3)
Quarter: 2017Q2

REPORT INFORMATION
  Report Type: Spontaneous
  Country: DE (occurrence: DE)
  Receive Date: 20170329
  Receipt Date: 20170510
  Transmission Date: 20170830
  Serious: Yes (Hospitalization)
  Sender: FDA-Public Use
  Company Number: PHHY2017DE044890

PATIENT
  Sex: Male
  Weight: 37.3 kg

DRUGS (1)
  1. ILARIS [Suspect]
     Active Substance: CANAKINUMAB
     Indication: STILL^S DISEASE
     Dosage: 79.4 MG EVERY 04 WEEKS
     Route: 042
     Dates: start: 20121025

REACTIONS (2)
  - Incorrect route of drug administration [Unknown]
  - Fibula fracture [Recovered/Resolved]

NARRATIVE: CASE EVENT DATE: 20121025
